FAERS Safety Report 6452427-4 (Version None)
Quarter: 2009Q4

REPORT INFORMATION
  Report Type: 
  Country: None (occurrence: None)
  Receive Date: 20091123
  Receipt Date: 20091111
  Transmission Date: 20100525
  Serious: Yes (Death, Life-Threatening)
  Sender: FDA-Public Use
  Company Number: JP-GENENTECH-278409

PATIENT
  Sex: Female
  Weight: 59 kg

DRUGS (5)
  1. AVASTIN [Suspect]
     Indication: COLORECTAL CANCER METASTATIC
     Dosage: 5 MG/KG, Q2W
     Route: 041
     Dates: start: 20080630, end: 20090106
  2. ELPLAT [Concomitant]
     Indication: DRUG USE FOR UNKNOWN INDICATION
     Dosage: 85 MG, UNK
     Route: 042
     Dates: start: 20080630, end: 20090106
  3. FLUOROURACIL [Concomitant]
     Indication: DRUG USE FOR UNKNOWN INDICATION
     Dosage: 400 MG/M2, UNK
     Dates: start: 20080630, end: 20090101
  4. FLUOROURACIL [Concomitant]
     Dosage: 2400 MG/M2, UNK
     Route: 042
     Dates: start: 20080630
  5. CALCIUM LEVOFOLINATE [Concomitant]
     Indication: DRUG USE FOR UNKNOWN INDICATION
     Dosage: 200 MG/M2, UNK
     Route: 042
     Dates: start: 20080630, end: 20090106

REACTIONS (3)
  - MALIGNANT ASCITES [None]
  - RECTAL PERFORATION [None]
  - SMALL INTESTINAL PERFORATION [None]
